FAERS Safety Report 16394309 (Version 1)
Quarter: 2019Q3

REPORT INFORMATION
  Report Type: Spontaneous
  Country: US (occurrence: US)
  Receive Date: 20190604
  Receipt Date: 20190604
  Transmission Date: 20191004
  Serious: Yes (Hospitalization)
  Sender: FDA-Public Use
  Company Number: None

PATIENT
  Age: 67 Year
  Sex: Male

DRUGS (1)
  1. ZYTIGA [Suspect]
     Active Substance: ABIRATERONE ACETATE
     Indication: PROSTATE CANCER
     Route: 048
     Dates: start: 20190312

REACTIONS (6)
  - Tremor [None]
  - Decreased appetite [None]
  - Chills [None]
  - Fatigue [None]
  - Ageusia [None]
  - Taste disorder [None]

NARRATIVE: CASE EVENT DATE: 20190519
